FAERS Safety Report 5558065-X (Version None)
Quarter: 2007Q4

REPORT INFORMATION
  Report Type: 
  Country: None (occurrence: None)
  Receive Date: 20071214
  Receipt Date: 20071203
  Transmission Date: 20080405
  Serious: Yes (Hospitalization)
  Sender: FDA-Public Use
  Company Number: ES-RANBAXY-2007US-11877

PATIENT

DRUGS (7)
  1. ISOPTIN SR [Suspect]
     Indication: ISCHAEMIC CARDIOMYOPATHY
     Dosage: 180 MG / 12 H
     Route: 048
     Dates: start: 20070926, end: 20071005
  2. NITRADISC 10 [Concomitant]
     Indication: ISCHAEMIC CARDIOMYOPATHY
     Dosage: 10 MG, UNK
     Route: 062
  3. PANTOPRAZOL [Concomitant]
     Indication: DRUG USE FOR UNKNOWN INDICATION
     Dosage: 40 MG, UNK
     Route: 048
     Dates: end: 20071005
  4. BIOLID 3.5 MG [Concomitant]
     Indication: CONSTIPATION
     Dosage: 3.5 MG, UNK
     Route: 048
     Dates: end: 20071005
  5. LEXATIN [Concomitant]
     Indication: DRUG USE FOR UNKNOWN INDICATION
     Dosage: 1.5 MG, UNK
     Route: 048
     Dates: end: 20071005
  6. DIOVAN HCT [Concomitant]
     Indication: HYPERTENSION
     Dosage: ONE TABLET
  7. ARTEDIL [Concomitant]
     Indication: ISCHAEMIC CARDIOMYOPATHY
     Dosage: 10 MG, UNK
     Route: 048
     Dates: end: 20071005

REACTIONS (5)
  - HYPONATRAEMIA [None]
  - HYPOTENSION [None]
  - HYPOVOLAEMIC SHOCK [None]
  - OEDEMA PERIPHERAL [None]
  - RENAL FAILURE ACUTE [None]
